FAERS Safety Report 5537688-8 (Version None)
Quarter: 2007Q4

REPORT INFORMATION
  Report Type: 
  Country: None (occurrence: None)
  Receive Date: 20071207
  Receipt Date: 20071120
  Transmission Date: 20080405
  Serious: No
  Sender: FDA-Public Use
  Company Number: US-JNJFOC-20071108792

PATIENT
  Sex: Female

DRUGS (3)
  1. INVEGA [Suspect]
     Indication: DRUG USE FOR UNKNOWN INDICATION
  2. DIABETIC MEDICATION [Concomitant]
  3. ANTIHYPERTENSIVES [Concomitant]

REACTIONS (3)
  - DRUG INEFFECTIVE [None]
  - DYSPNOEA [None]
  - OEDEMA PERIPHERAL [None]
